FAERS Safety Report 6247888-X (Version None)
Quarter: 2009Q2

REPORT INFORMATION
  Report Type: 
  Country: None (occurrence: None)
  Receive Date: 20090626
  Receipt Date: 20090615
  Transmission Date: 20091009
  Serious: Yes (Other)
  Sender: FDA-Public Use
  Company Number: TR-MYLANLABS-2009S1010531

PATIENT
  Age: 34 Year
  Sex: Male

DRUGS (3)
  1. BLEOMYCIN SULFATE [Suspect]
     Indication: TESTIS CANCER
     Dosage: DAYS 1, 8, 15
  2. CISPLATIN [Suspect]
     Indication: TESTIS CANCER
     Dosage: DAYS 1-5
  3. ETOPOSIDE [Suspect]
     Indication: TESTIS CANCER
     Dosage: DAYS 1-5

REACTIONS (1)
  - CEREBRAL INFARCTION [None]
